FAERS Safety Report 20036938 (Version 4)
Quarter: 2022Q1

REPORT INFORMATION
  Report Type: Report from Study
  Country: GB (occurrence: GB)
  Receive Date: 20211105
  Receipt Date: 20220118
  Transmission Date: 20220423
  Serious: Yes (Hospitalization)
  Sender: FDA-Public Use
  Company Number: GB-GLAXOSMITHKLINE-GB2021226640

PATIENT
  Age: 70 Year
  Sex: Female

DRUGS (13)
  1. BELANTAMAB MAFODOTIN [Suspect]
     Active Substance: BELANTAMAB MAFODOTIN
     Indication: Plasma cell myeloma
     Dosage: 140.00 MG, CYC
     Route: 042
     Dates: start: 20210520
  2. BORTEZOMIB [Suspect]
     Active Substance: BORTEZOMIB
     Indication: Plasma cell myeloma
     Dosage: 2 MG, CYC
     Route: 058
     Dates: start: 20210520
  3. DEXAMETHASONE [Suspect]
     Active Substance: DEXAMETHASONE
     Indication: Plasma cell myeloma
     Dosage: 20 MG
     Dates: start: 20210520
  4. AMLODIPINE [Concomitant]
     Active Substance: AMLODIPINE BESYLATE
     Indication: Hypertension
     Dosage: 10 MG, 1D
     Route: 048
     Dates: start: 20201101
  5. RAMIPRIL [Concomitant]
     Active Substance: RAMIPRIL
     Indication: Hypertension
     Dosage: 2.5 MG, 1D
     Route: 048
     Dates: start: 20201101
  6. ACETAMINOPHEN [Concomitant]
     Active Substance: ACETAMINOPHEN
     Indication: Pain
     Dosage: 1 G, PRN
     Route: 048
     Dates: start: 20210520
  7. IQYMUNE [Concomitant]
     Indication: Immunodeficiency
     Dosage: 25 MG, SINGLE
     Route: 042
     Dates: start: 20211102, end: 20211102
  8. IQYMUNE [Concomitant]
     Dosage: 25 MG, SINGLE
     Route: 042
     Dates: start: 20211104, end: 20211104
  9. PREDNISOLONE [Concomitant]
     Active Substance: PREDNISOLONE
     Indication: Steroid therapy
     Dosage: 30 MG, 1D
     Route: 048
     Dates: start: 20211102, end: 20211106
  10. IPRATROPIUM [Concomitant]
     Active Substance: IPRATROPIUM
     Indication: Inhalation therapy
     Dosage: 500 MG, QID
     Route: 055
     Dates: start: 20211102, end: 20211107
  11. ALBUTEROL [Concomitant]
     Active Substance: ALBUTEROL
     Indication: Inhalation therapy
     Dosage: 2.5 MG, QID
     Route: 055
     Dates: start: 20211102, end: 20211107
  12. ENOXAPARIN SODIUM [Concomitant]
     Active Substance: ENOXAPARIN SODIUM
     Indication: Thrombosis prophylaxis
     Dosage: 40 MG, 1D
     Route: 030
     Dates: start: 20211102, end: 20211107
  13. DOXYCYCLINE [Concomitant]
     Active Substance: DOXYCYCLINE
     Indication: Infection
     Dosage: 200 MG, BID
     Route: 048
     Dates: start: 20211102, end: 20211108

REACTIONS (1)
  - Metapneumovirus infection [Recovering/Resolving]

NARRATIVE: CASE EVENT DATE: 20211102
